FAERS Safety Report 23949501 (Version 1)
Quarter: 2024Q2

REPORT INFORMATION
  Report Type: Spontaneous
  Country: US (occurrence: US)
  Receive Date: 20240607
  Receipt Date: 20240607
  Transmission Date: 20240716
  Serious: Yes (Other)
  Sender: FDA-Public Use
  Company Number: US-BRISTOL-MYERS SQUIBB COMPANY-2024-086921

PATIENT
  Sex: Male

DRUGS (2)
  1. PACLITAXEL [Suspect]
     Active Substance: PACLITAXEL
     Indication: Metastatic lymphoma
  2. CAMRELIZUMAB [Suspect]
     Active Substance: CAMRELIZUMAB
     Indication: Metastatic lymphoma

REACTIONS (8)
  - Seizure [Unknown]
  - Syncope [Unknown]
  - Slow speech [Unknown]
  - Bradykinesia [Unknown]
  - Rash pruritic [Unknown]
  - COVID-19 [Unknown]
  - Off label use [Unknown]
  - Drug hypersensitivity [Unknown]

NARRATIVE: CASE EVENT DATE: 20220801
